FAERS Safety Report 8614538-4 (Version None)
Quarter: 2012Q3

REPORT INFORMATION
  Report Type: 
  Country: None (occurrence: None)
  Receive Date: 20120823
  Receipt Date: 20120813
  Transmission Date: 20120928
  Serious: No
  Sender: FDA-Public Use
  Company Number: US-B.I. PHARMACEUTICALS,INC./RIDGEFIELD-2012-BP-19046BP

PATIENT
  Sex: Male
  Weight: 64 kg

DRUGS (4)
  1. VENTOLIN [Concomitant]
     Indication: DYSPNOEA
     Dosage: 8 PUF
     Route: 055
     Dates: start: 20110101
  2. SYMBICORT [Concomitant]
     Indication: CHRONIC OBSTRUCTIVE PULMONARY DISEASE
     Dosage: 4 PUF
     Route: 055
     Dates: start: 20120201
  3. SPIRIVA [Suspect]
     Indication: CHRONIC OBSTRUCTIVE PULMONARY DISEASE
     Dosage: 18 MCG
     Route: 055
     Dates: start: 20120301
  4. DULERA [Concomitant]
     Indication: CHRONIC OBSTRUCTIVE PULMONARY DISEASE
     Dates: start: 20120301, end: 20120301

REACTIONS (5)
  - AGEUSIA [None]
  - DYSPNOEA [None]
  - HICCUPS [None]
  - DYSGEUSIA [None]
  - HYPOAESTHESIA ORAL [None]
